FAERS Safety Report 6410195-6 (Version None)
Quarter: 2009Q4

REPORT INFORMATION
  Report Type: 
  Country: None (occurrence: None)
  Receive Date: 20091022
  Receipt Date: 20091007
  Transmission Date: 20100525
  Serious: Yes (Death, Other)
  Sender: FDA-Public Use
  Company Number: IN-PFIZER INC-2009280325

PATIENT

DRUGS (5)
  1. SUTENT [Suspect]
     Indication: METASTATIC RENAL CELL CARCINOMA
     Dosage: 37.5 MG, 1X/DAY
     Route: 048
  2. IBANDRONIC ACID [Concomitant]
     Dosage: 10 MG, 6% IN NORMAL SALINE (NS)
  3. URSODEOXYCHOLIC ACID [Concomitant]
     Dosage: 150 MG, 2X/DAY
  4. RAZO D [Concomitant]
     Dosage: 150 MG, 1X/DAY
  5. SHELCAL [Concomitant]
     Dosage: 2X/DAY

REACTIONS (2)
  - DEATH [None]
  - NERVOUS SYSTEM DISORDER [None]
